FAERS Safety Report 4628650-8 (Version None)
Quarter: 2005Q2

REPORT INFORMATION
  Report Type: 
  Country: None (occurrence: None)
  Receive Date: 20050404
  Receipt Date: 20050318
  Transmission Date: 20051028
  Serious: Yes (Life-Threatening, Hospitalization)
  Sender: FDA-Public Use
  Company Number: 2005-BP-04805BP

PATIENT
  Age: 60 Year
  Sex: Female

DRUGS (2)
  1. MOBIC [Suspect]
     Indication: ARTHRITIS
     Dosage: 7.5 MG (7.5 MG), PO
     Route: 048
     Dates: start: 20050314, end: 20050317
  2. MOBIC [Suspect]
     Indication: PAIN IN EXTREMITY
     Dosage: 7.5 MG (7.5 MG), PO
     Route: 048
     Dates: start: 20050314, end: 20050317

REACTIONS (1)
  - MYOCARDIAL INFARCTION [None]
